FAERS Safety Report 11587798 (Version 15)
Quarter: 2018Q2

REPORT INFORMATION
  Report Type: Report from Study
  Country: BR (occurrence: BR)
  Receive Date: 20151001
  Receipt Date: 20180621
  Transmission Date: 20180711
  Serious: Yes (Hospitalization, Other)
  Sender: FDA-Public Use
  Company Number: PHHY2015BR118765

PATIENT
  Age: 11 Year
  Sex: Female
  Weight: 40 kg

DRUGS (6)
  1. HIDROXIUREA [Concomitant]
     Active Substance: HYDROXYUREA
     Dosage: U2 DF/ 4TIMES A WEEK AND 1 DF QD/3 TIMES A WEEK
     Route: 048
     Dates: start: 201702
  2. EXJADE [Suspect]
     Active Substance: DEFERASIROX
     Indication: SICKLE CELL ANAEMIA
     Dosage: 500 MG, QD
     Route: 048
     Dates: start: 2011, end: 2011
  3. EXJADE [Suspect]
     Active Substance: DEFERASIROX
     Dosage: 500 MG, QD
     Route: 048
     Dates: end: 201804
  4. FOLIC ACID. [Concomitant]
     Active Substance: FOLIC ACID
     Indication: SICKLE CELL ANAEMIA
     Dosage: 5 MG (1 DF), QD
     Route: 048
     Dates: start: 2004
  5. EXJADE [Suspect]
     Active Substance: DEFERASIROX
     Dosage: 0.5 DF, UNK (1 TABLET SPLIT IN HALF)
     Route: 048
  6. HIDROXIUREA [Concomitant]
     Active Substance: HYDROXYUREA
     Indication: SICKLE CELL ANAEMIA
     Dosage: 500 MG (1 DF), QD
     Route: 048
     Dates: start: 201611

REACTIONS (33)
  - Pneumonia [Recovered/Resolved]
  - Painful respiration [Not Recovered/Not Resolved]
  - Malaise [Unknown]
  - Breast swelling [Recovering/Resolving]
  - Fatigue [Unknown]
  - Abdominal distension [Unknown]
  - Blood iron increased [Unknown]
  - Back pain [Unknown]
  - Wrong technique in product usage process [Unknown]
  - Pain [Recovered/Resolved]
  - Syncope [Not Recovered/Not Resolved]
  - Road traffic accident [Recovering/Resolving]
  - Gait disturbance [Unknown]
  - Weight decreased [Unknown]
  - Abdominal pain [Unknown]
  - Pain in extremity [Unknown]
  - Ultrasound Doppler abnormal [Unknown]
  - Pyrexia [Unknown]
  - Head injury [Recovering/Resolving]
  - Splenomegaly [Unknown]
  - Tooth disorder [Unknown]
  - Headache [Unknown]
  - Haematocrit decreased [Unknown]
  - Cardiac disorder [Recovering/Resolving]
  - Swelling face [Recovering/Resolving]
  - Serum ferritin increased [Recovering/Resolving]
  - Sickle cell anaemia with crisis [Not Recovered/Not Resolved]
  - Oral disorder [Not Recovered/Not Resolved]
  - Cerebrovascular accident [Recovered/Resolved]
  - Oropharyngeal pain [Not Recovered/Not Resolved]
  - Swelling [Unknown]
  - Movement disorder [Unknown]
  - Dizziness [Unknown]

NARRATIVE: CASE EVENT DATE: 2015
